FAERS Safety Report 12701960 (Version 1)
Quarter: 2016Q3

REPORT INFORMATION
  Report Type: Spontaneous
  Country: US (occurrence: None)
  Receive Date: 20160830
  Receipt Date: 20160830
  Transmission Date: 20161109
  Serious: Yes (Other)
  Sender: FDA-Public Use
  Company Number: None

PATIENT
  Age: 67 Year
  Sex: Female
  Weight: 80.29 kg

DRUGS (2)
  1. MYRBETRIQ [Suspect]
     Active Substance: MIRABEGRON
     Indication: HYPERTONIC BLADDER
     Dosage: ONE
     Route: 048
     Dates: start: 20160715, end: 20160808
  2. MYRBETRIQ [Suspect]
     Active Substance: MIRABEGRON
     Indication: URGE INCONTINENCE
     Dosage: ONE
     Route: 048
     Dates: start: 20160715, end: 20160808

REACTIONS (6)
  - Headache [None]
  - Rash [None]
  - Pain [None]
  - Nausea [None]
  - Vomiting [None]
  - Blister [None]

NARRATIVE: CASE EVENT DATE: 20160805
